FAERS Safety Report 7673611-8 (Version None)
Quarter: 2011Q3

REPORT INFORMATION
  Report Type: 
  Country: None (occurrence: None)
  Receive Date: 20110810
  Receipt Date: 20110805
  Transmission Date: 20111222
  Serious: Yes (Other)
  Sender: FDA-Public Use
  Company Number: CZ-AMGEN-CZESP2011039908

PATIENT
  Age: 46 Year
  Sex: Male

DRUGS (6)
  1. PREDNISONE [Concomitant]
     Dosage: 100 MG, UNK
     Dates: start: 20110619
  2. MIMPARA                            /01735301/ [Concomitant]
     Indication: RENAL FAILURE CHRONIC
     Dosage: 30 MG, QD
     Route: 048
     Dates: start: 20100101
  3. MILURIT [Concomitant]
     Indication: RENAL FAILURE CHRONIC
     Dosage: 100 MG, QD
     Route: 048
     Dates: start: 20050101
  4. DARBEPOETIN ALFA [Suspect]
     Indication: RENAL FAILURE CHRONIC
     Dosage: 60 A?G, Q2WK
     Route: 058
     Dates: start: 20090910, end: 20110519
  5. FOSRENOL [Concomitant]
     Indication: RENAL FAILURE CHRONIC
     Dosage: 1000 MG, TID
     Route: 048
     Dates: start: 20100101
  6. ATORIS [Concomitant]
     Indication: RENAL FAILURE CHRONIC
     Dosage: 10 MG, QD
     Route: 048
     Dates: start: 20050101

REACTIONS (3)
  - THERAPEUTIC RESPONSE DECREASED [None]
  - ANTIBODY TEST POSITIVE [None]
  - APLASIA PURE RED CELL [None]
